FAERS Safety Report 5587297-X (Version None)
Quarter: 2007Q4

REPORT INFORMATION
  Report Type: 
  Country: None (occurrence: None)
  Receive Date: 20071207
  Receipt Date: 20061201
  Transmission Date: 20080405
  Serious: Yes (Other)
  Sender: FDA-Public Use
  Company Number: 2006150663

PATIENT
  Age: 58 Year
  Sex: Male
  Weight: 99.7913 kg

DRUGS (7)
  1. VIAGRA [Suspect]
     Dosage: 25 MG (25 MG,AS NECESSARY)
     Dates: start: 20060101
  2. ZYRTEC [Concomitant]
  3. NASONEX [Concomitant]
  4. MULTIVITAMIN [Concomitant]
  5. ACETYLSALICYLIC ACID SRT [Concomitant]
  6. NIASPAN [Concomitant]
  7. TAMSULOSIN HCL [Concomitant]

REACTIONS (3)
  - ANXIETY [None]
  - BLOOD PRESSURE INCREASED [None]
  - FLUSHING [None]
